FAERS Safety Report 8762199 (Version 1)
Quarter: 2012Q4

REPORT INFORMATION
  Report Type: 
  Country: BR (occurrence: BR)
  Receive Date: 20120828
  Receipt Date: 20120828
  Transmission Date: 20130627
  Serious: Yes (Other)
  Sender: FDA-Public Use
  Company Number: BR-PFIZER INC-2012209749

PATIENT
  Sex: Female

DRUGS (2)
  1. ALPRAZOLAM XR [Suspect]
     Indication: DEPRESSION
     Dosage: 0.5 mg, (1 tablet) 1x/day
     Route: 048
     Dates: start: 2009, end: 2010
  2. ATENOLOL [Concomitant]
     Indication: HYPERTENSION
     Dosage: 1 tablet 1x/day

REACTIONS (2)
  - Blood pressure increased [Unknown]
  - Feeling abnormal [Recovered/Resolved]
